FAERS Safety Report 13042285 (Version 4)
Quarter: 2020Q3

REPORT INFORMATION
  Report Type: Report from Study
  Country: US (occurrence: US)
  Receive Date: 20161219
  Receipt Date: 20170317
  Transmission Date: 20201105
  Serious: Yes (Hospitalization, Other)
  Sender: FDA-Public Use
  Company Number: US-JNJFOC-20161210997

PATIENT
  Age: 50 Year
  Sex: Female
  Weight: 77.11 kg

DRUGS (25)
  1. COMPAZINE [Concomitant]
     Active Substance: PROCHLORPERAZINE MALEATE
     Indication: VOMITING
     Route: 048
  2. MAG?TAB [Concomitant]
     Active Substance: MAGNESIUM LACTATE
     Route: 048
  3. LIPOSOMAL DIXOROBICIN [Suspect]
     Active Substance: DOXORUBICIN HYDROCHLORIDE
     Indication: MALIGNANT PERITONEAL NEOPLASM
     Dosage: CYCLE 1
     Route: 042
     Dates: start: 20161006
  4. ZOFRAN [Concomitant]
     Active Substance: ONDANSETRON HYDROCHLORIDE
     Indication: VOMITING
     Route: 048
  5. ZOFRAN [Concomitant]
     Active Substance: ONDANSETRON HYDROCHLORIDE
     Indication: NAUSEA
     Dosage: ALLOW TO DISSOLVE IN MOUTH
     Route: 048
  6. PATADAY [Concomitant]
     Active Substance: OLOPATADINE HYDROCHLORIDE
     Dosage: 0.2% OPHT EYE DROPS, APPLY 1 DROP INTO BOTH EYES
     Route: 047
  7. ALBUTEROL. [Concomitant]
     Active Substance: ALBUTEROL
     Dosage: ACTUATION INHL AERO, INHALE 2 PUFFS BY MOUTH EVERY 4 HOURS AS NEEDED
     Route: 055
  8. TRABECTEDIN [Suspect]
     Active Substance: TRABECTEDIN
     Indication: MALIGNANT PERITONEAL NEOPLASM
     Dosage: CYCLE 1
     Route: 042
     Dates: start: 20161006
  9. ZOFRAN [Concomitant]
     Active Substance: ONDANSETRON HYDROCHLORIDE
     Indication: NAUSEA
     Route: 048
  10. COMPAZINE [Concomitant]
     Active Substance: PROCHLORPERAZINE MALEATE
     Indication: NAUSEA
     Route: 048
  11. NEURONTIN [Concomitant]
     Active Substance: GABAPENTIN
     Route: 048
  12. SINGULAIR [Concomitant]
     Active Substance: MONTELUKAST SODIUM
     Route: 048
  13. TRABECTEDIN [Suspect]
     Active Substance: TRABECTEDIN
     Indication: MALIGNANT PERITONEAL NEOPLASM
     Route: 042
     Dates: start: 20161122, end: 20161122
  14. ULTRAM [Concomitant]
     Active Substance: TRAMADOL HYDROCHLORIDE
     Indication: PAIN
     Dosage: AS NEEDED
     Route: 048
  15. ZYRTEC [Concomitant]
     Active Substance: CETIRIZINE HYDROCHLORIDE
     Route: 048
  16. XANAX [Concomitant]
     Active Substance: ALPRAZOLAM
     Indication: ANXIETY
     Route: 048
  17. AMBIEN CR [Concomitant]
     Active Substance: ZOLPIDEM TARTRATE
     Indication: INSOMNIA
     Route: 048
  18. NORCO [Concomitant]
     Active Substance: ACETAMINOPHEN\HYDROCODONE BITARTRATE
     Indication: PAIN
     Dosage: TAKE 1?2 TABLETS BY MOUTH EVERY 4 TO 6 HOURS AS NEEDED
     Route: 048
  19. SIMETHICONE (DIMETHICONE) [Concomitant]
     Active Substance: DIMETHICONE
     Route: 048
  20. TRABECTEDIN [Suspect]
     Active Substance: TRABECTEDIN
     Indication: MALIGNANT PERITONEAL NEOPLASM
     Dosage: CYCLE 2
     Route: 042
  21. LIPOSOMAL DIXOROBICIN [Suspect]
     Active Substance: DOXORUBICIN HYDROCHLORIDE
     Indication: MALIGNANT PERITONEAL NEOPLASM
     Dosage: CYCLE 3
     Route: 042
     Dates: start: 20161122, end: 20161122
  22. ZOFRAN [Concomitant]
     Active Substance: ONDANSETRON HYDROCHLORIDE
     Indication: VOMITING
     Dosage: ALLOW TO DISSOLVE IN MOUTH
     Route: 048
  23. ATIVAN [Concomitant]
     Active Substance: LORAZEPAM
     Route: 048
  24. NEULASTA [Concomitant]
     Active Substance: PEGFILGRASTIM
     Route: 065
  25. LIPOSOMAL DIXOROBICIN [Suspect]
     Active Substance: DOXORUBICIN HYDROCHLORIDE
     Indication: MALIGNANT PERITONEAL NEOPLASM
     Dosage: CYCLE 2
     Route: 042

REACTIONS (3)
  - Rectal haemorrhage [Recovered/Resolved]
  - Neutropenia [Recovering/Resolving]
  - Thrombocytopenia [Recovering/Resolving]

NARRATIVE: CASE EVENT DATE: 20161206
